FAERS Safety Report 19414313 (Version 2)
Quarter: 2021Q2

REPORT INFORMATION
  Report Type: Spontaneous
  Country: DE (occurrence: DE)
  Receive Date: 20210615
  Receipt Date: 20210617
  Transmission Date: 20210717
  Serious: Yes (Other)
  Sender: FDA-Public Use
  Company Number: DE-ESPERION THERAPEUTICS, INC-2021DEU01125

PATIENT
  Age: 64 Year
  Sex: Male
  Weight: 80 kg

DRUGS (2)
  1. NILEMDO [Suspect]
     Active Substance: BEMPEDOIC ACID
     Indication: TYPE IIA HYPERLIPIDAEMIA
     Dosage: 180 MG, QD
     Route: 048
     Dates: start: 20210414, end: 20210517
  2. PHENPROCOUMON [Concomitant]
     Active Substance: PHENPROCOUMON
     Indication: AORTIC VALVE REPLACEMENT
     Dosage: 3 MG, QD, INTERRUPTED FOR 4 DAYS
     Route: 048

REACTIONS (3)
  - Myalgia [Recovered/Resolved]
  - International normalised ratio increased [Recovered/Resolved]
  - Blood creatine phosphokinase increased [Recovered/Resolved]

NARRATIVE: CASE EVENT DATE: 20210517
